FAERS Safety Report 6934656-6 (Version None)
Quarter: 2010Q3

REPORT INFORMATION
  Report Type: 
  Country: None (occurrence: None)
  Receive Date: 20100820
  Receipt Date: 20100812
  Transmission Date: 20110219
  Serious: Yes (Hospitalization)
  Sender: FDA-Public Use
  Company Number: US-ABBOTT-10P-163-0663687-00

PATIENT
  Sex: Female
  Weight: 60.836 kg

DRUGS (10)
  1. NIASPAN [Suspect]
     Indication: LOW DENSITY LIPOPROTEIN INCREASED
     Dates: start: 20080101
  2. NIASPAN [Suspect]
     Indication: VASCULAR GRAFT
  3. ASPIRIN [Concomitant]
     Indication: CARDIAC OPERATION
  4. LIPITOR [Concomitant]
     Indication: BLOOD CHOLESTEROL INCREASED
  5. PLAVIX [Concomitant]
     Indication: CARDIAC OPERATION
  6. RAMIPRIL [Concomitant]
     Indication: HYPERTENSION
  7. LASIX [Concomitant]
     Indication: CARDIAC OPERATION
  8. HUMALOG [Concomitant]
     Indication: DIABETES MELLITUS
     Dosage: PER SLIDING SCALE
  9. ALLOPURINOL [Concomitant]
     Indication: GOUT
  10. MULTAQ [Concomitant]
     Indication: CARDIAC PACEMAKER INSERTION
     Dates: start: 20100101

REACTIONS (6)
  - ANAEMIA [None]
  - DIABETES MELLITUS [None]
  - DRUG TOXICITY [None]
  - HAEMORRHAGE SUBCUTANEOUS [None]
  - RENAL FAILURE [None]
  - STREPTOCOCCAL INFECTION [None]
